FAERS Safety Report 9883892 (Version 4)
Quarter: 2014Q2

REPORT INFORMATION
  Report Type: Report from Study
  Country: DE (occurrence: DE)
  Receive Date: 20140210
  Receipt Date: 20140627
  Transmission Date: 20141212
  Serious: Yes (Hospitalization)
  Sender: FDA-Public Use
  Company Number: DE-ABBVIE-14P-062-1198499-00

PATIENT
  Age: 65 Year
  Sex: Female

DRUGS (18)
  1. HUMIRA [Suspect]
     Indication: RHEUMATOID ARTHRITIS
     Route: 058
     Dates: start: 20110222, end: 20140112
  2. HUMIRA [Suspect]
     Dosage: RE-START
     Dates: start: 201404
  3. LEFLUNOMID [Suspect]
     Indication: PRODUCT USED FOR UNKNOWN INDICATION
  4. INSULIN [Concomitant]
     Indication: PRODUCT USED FOR UNKNOWN INDICATION
  5. ANTIHYPERTENSIVES [Concomitant]
     Indication: PRODUCT USED FOR UNKNOWN INDICATION
  6. METHYLPREDNISOLON [Concomitant]
     Indication: PRODUCT USED FOR UNKNOWN INDICATION
  7. CALCIMAGON D3 [Concomitant]
     Indication: PRODUCT USED FOR UNKNOWN INDICATION
  8. NOVALGIN [Concomitant]
     Indication: PRODUCT USED FOR UNKNOWN INDICATION
  9. OMEPRAZOL [Concomitant]
     Indication: PRODUCT USED FOR UNKNOWN INDICATION
  10. KREON [Concomitant]
     Indication: PRODUCT USED FOR UNKNOWN INDICATION
  11. INSUMAN RAPID [Concomitant]
     Indication: PRODUCT USED FOR UNKNOWN INDICATION
  12. LANTUS [Concomitant]
     Indication: PRODUCT USED FOR UNKNOWN INDICATION
  13. LANTAREL [Concomitant]
     Indication: PRODUCT USED FOR UNKNOWN INDICATION
     Dosage: DOSAGE DECREASED
  14. INDOMET [Concomitant]
     Indication: PRODUCT USED FOR UNKNOWN INDICATION
  15. CALCIUM [Concomitant]
     Indication: PRODUCT USED FOR UNKNOWN INDICATION
  16. TRIAMTEREN [Concomitant]
     Indication: PRODUCT USED FOR UNKNOWN INDICATION
  17. THYRONAJOD [Concomitant]
     Indication: PRODUCT USED FOR UNKNOWN INDICATION
  18. UREON 20000 [Concomitant]
     Indication: PRODUCT USED FOR UNKNOWN INDICATION

REACTIONS (6)
  - Malaise [Recovered/Resolved]
  - Pancreatitis [Recovered/Resolved]
  - Endometrial hyperplasia [Recovered/Resolved]
  - General physical health deterioration [Recovered/Resolved]
  - Stress [Unknown]
  - Diverticulitis [Recovered/Resolved]
